FAERS Safety Report 5401634-8 (Version None)
Quarter: 2007Q3

REPORT INFORMATION
  Report Type: 
  Country: None (occurrence: None)
  Receive Date: 20070731
  Receipt Date: 20070720
  Transmission Date: 20080115
  Serious: Yes (Death, Other)
  Sender: FDA-Public Use
  Company Number: CA-PFIZER INC-2007061207

PATIENT
  Age: 70 Year
  Sex: Male

DRUGS (7)
  1. LYRICA [Suspect]
     Indication: BRAIN NEOPLASM
     Route: 048
  2. PROPRANOLOL [Concomitant]
  3. HYDROCHLOROTHIAZIDE [Concomitant]
  4. CODEINE SUL TAB [Concomitant]
  5. LORAZEPAM [Concomitant]
  6. PREDNISONE [Concomitant]
  7. TYLENOL W/ CODEINE NO. 3 [Concomitant]

REACTIONS (3)
  - BLOOD PRESSURE DECREASED [None]
  - BRADYCARDIA [None]
  - MYOCARDIAL INFARCTION [None]
